FAERS Safety Report 10818286 (Version 1)
Quarter: 2015Q1

REPORT INFORMATION
  Report Type: Spontaneous
  Country: AU (occurrence: AU)
  Receive Date: 20150218
  Receipt Date: 20150218
  Transmission Date: 20150721
  Serious: Yes (Other)
  Sender: FDA-Public Use
  Company Number: AU-SYMPLMED PHARMACEUTICALS-2014SYM00006

PATIENT
  Age: 63 Year
  Sex: Female

DRUGS (2)
  1. ACEON [Suspect]
     Active Substance: PERINDOPRIL ERBUMINE
     Indication: HYPERTENSION
     Dosage: 10 MG, QD
     Route: 048
     Dates: start: 2008, end: 2012
  2. ACEON [Suspect]
     Active Substance: PERINDOPRIL ERBUMINE
     Dosage: 10 MG, QD
     Route: 048
     Dates: start: 2012

REACTIONS (4)
  - Diverticulitis [Unknown]
  - Diarrhoea [Unknown]
  - Renal colic [Unknown]
  - Cough [Not Recovered/Not Resolved]

NARRATIVE: CASE EVENT DATE: 20140320
